FAERS Safety Report 9519362 (Version 1)
Quarter: 2013Q1

REPORT INFORMATION
  Report Type: Spontaneous
  Country: US (occurrence: None)
  Receive Date: 20130305
  Receipt Date: 20130305
  Transmission Date: 20140127
  Serious: Yes (Other)
  Sender: FDA-Public Use
  Company Number: 163-21880-12070476

PATIENT
  Age: 76 Year
  Sex: Male
  Weight: 58.51 kg

DRUGS (1)
  1. REVLIMID (LENALIDOMIDE) (CAPSULES) [Suspect]
     Indication: PLASMA CELL MYELOMA
     Dosage: 25 MG, 1 IN 1 D, PO
     Route: 048
     Dates: start: 201108

REACTIONS (7)
  - Vomiting [None]
  - Rash [None]
  - Diarrhoea [None]
  - Nausea [None]
  - Neuropathy peripheral [None]
  - Pain in extremity [None]
  - Drug intolerance [None]
